FAERS Safety Report 7418957-3 (Version None)
Quarter: 2011Q2

REPORT INFORMATION
  Report Type: 
  Country: None (occurrence: None)
  Receive Date: 20110415
  Receipt Date: 20110412
  Transmission Date: 20111010
  Serious: Yes (Other)
  Sender: FDA-Public Use
  Company Number: US-BAYER-2011-032035

PATIENT
  Age: 70 Year
  Sex: Female

DRUGS (1)
  1. INTERFERON BETA-1B [Suspect]
     Indication: MULTIPLE SCLEROSIS
     Dosage: 8 MIU, QOD
     Dates: start: 19940107

REACTIONS (5)
  - FOOT DEFORMITY [None]
  - PYREXIA [None]
  - MUSCLE TIGHTNESS [None]
  - TENSION [None]
  - CHILLS [None]
